FAERS Safety Report 4589773-5 (Version None)
Quarter: 2005Q1

REPORT INFORMATION
  Report Type: 
  Country: None (occurrence: None)
  Receive Date: 20050223
  Receipt Date: 20030924
  Transmission Date: 20050727
  Serious: Yes (Hospitalization)
  Sender: FDA-Public Use
  Company Number: PHBS2003BE10447

PATIENT
  Age: 63 Year
  Sex: Female

DRUGS (8)
  1. EXELON [Suspect]
     Indication: DEMENTIA ALZHEIMER'S TYPE
     Dosage: 3 MG, BID
     Route: 048
     Dates: start: 20020501
  2. EXELON [Suspect]
     Dosage: 4.5 MG, BID
     Route: 048
     Dates: start: 20021129
  3. EXELON [Suspect]
     Dosage: 3 MG, BID
     Route: 048
  4. UNITRANXENE [Concomitant]
     Route: 065
  5. SEROXAT ^CIBA-GEIGY^ [Concomitant]
     Route: 065
  6. TRAZOLAN [Concomitant]
     Route: 065
  7. IMOVANE [Concomitant]
     Route: 065
  8. DAKAR [Concomitant]
     Route: 065

REACTIONS (10)
  - ATRIAL FIBRILLATION [None]
  - CARDIOVASCULAR DISORDER [None]
  - CONFUSIONAL STATE [None]
  - DIARRHOEA [None]
  - DIASTOLIC DYSFUNCTION [None]
  - GASTROINTESTINAL DISORDER [None]
  - MITRAL VALVE DISEASE [None]
  - VENTRICULAR HYPERTROPHY [None]
  - VENTRICULAR TACHYCARDIA [None]
  - VOMITING [None]
